FAERS Safety Report 23148621 (Version 1)
Quarter: 2023Q4

REPORT INFORMATION
  Report Type: Spontaneous
  Country: US (occurrence: None)
  Receive Date: 20231103
  Receipt Date: 20231103
  Transmission Date: 20240110
  Serious: No
  Sender: FDA-Public Use
  Company Number: None

PATIENT
  Age: 61 Year
  Sex: Male

DRUGS (3)
  1. LENALIDOMIDE [Suspect]
     Active Substance: LENALIDOMIDE
     Indication: Plasma cell myeloma
     Dosage: FREQUENCY : DAILY;?
     Route: 048
     Dates: start: 20231012
  2. DEXAMETHASONE [Suspect]
     Active Substance: DEXAMETHASONE
  3. BORTEZOMIB [Suspect]
     Active Substance: BORTEZOMIB

REACTIONS (4)
  - Dyspnoea [None]
  - Pyrexia [None]
  - Haemoglobin decreased [None]
  - Red blood cell transfusion [None]

NARRATIVE: CASE EVENT DATE: 20231020
